FAERS Safety Report 7092310-7 (Version None)
Quarter: 2010Q4

REPORT INFORMATION
  Report Type: 
  Country: None (occurrence: None)
  Receive Date: 20101109
  Receipt Date: 20101103
  Transmission Date: 20110411
  Serious: Yes (Hospitalization)
  Sender: FDA-Public Use
  Company Number: DE-BRISTOL-MYERS SQUIBB COMPANY-15265945

PATIENT
  Age: 66 Year
  Sex: Male
  Weight: 59 kg

DRUGS (4)
  1. CETUXIMAB [Suspect]
     Indication: HEAD AND NECK CANCER
     Dosage: RECENT INF:30APR10,06MAY10(28D),RESTARTED:20MAY10,NO OF INF:2,FORMULATION:5MG/ML
     Route: 042
     Dates: start: 20100408
  2. CISPLATIN [Suspect]
     Indication: HEAD AND NECK CANCER
     Dosage: RECENT INF:30APR10,NO OF INF:2
     Route: 042
     Dates: start: 20100408
  3. CILENGITIDE [Suspect]
     Indication: HEAD AND NECK CANCER
     Dosage: 08APR10-6MAY10(28D) RECENT INF:3MAY10,RESTARTED:20MAY10,NO OF INF:10
     Route: 042
     Dates: start: 20100408
  4. FLUOROURACIL [Suspect]
     Indication: HEAD AND NECK CANCER
     Dosage: DOSAGE:CONTINOUS INF FROM DAY 1-DAY 4 OF CYCLE,RECENT INF:30APR10,NO OF INF:2
     Route: 042
     Dates: start: 20100408

REACTIONS (2)
  - SYNCOPE [None]
  - THROMBOCYTOPENIA [None]
